FAERS Safety Report 10383087 (Version 1)
Quarter: 2014Q3

REPORT INFORMATION
  Report Type: Spontaneous
  Country: US (occurrence: US)
  Receive Date: 20140813
  Receipt Date: 20140813
  Transmission Date: 20150326
  Serious: No
  Sender: FDA-Public Use
  Company Number: -SAAVPROD-FABR-1003506

PATIENT

DRUGS (1)
  1. AGALSIDASE BETA [Suspect]
     Active Substance: AGALSIDASE BETA
     Indication: FABRY^S DISEASE
     Dosage: 100 MG, Q2W
     Route: 042

REACTIONS (4)
  - Pruritus [Unknown]
  - Feeling hot [Unknown]
  - Throat irritation [Unknown]
  - Hyperhidrosis [Unknown]
